FAERS Safety Report 5772967-0 (Version None)
Quarter: 2008Q2

REPORT INFORMATION
  Report Type: 
  Country: None (occurrence: None)
  Receive Date: 20080613
  Receipt Date: 20080604
  Transmission Date: 20081010
  Serious: Yes (Other)
  Sender: FDA-Public Use
  Company Number: FR-PFIZER INC-2008047682

PATIENT
  Age: 63 Year
  Sex: Female

DRUGS (1)
  1. ATORVASTATIN [Suspect]

REACTIONS (1)
  - MYOPATHY [None]
